FAERS Safety Report 13468975 (Version 1)
Quarter: 2017Q2

REPORT INFORMATION
  Report Type: Spontaneous
  Country: US (occurrence: BR)
  Receive Date: 20170421
  Receipt Date: 20170421
  Transmission Date: 20170830
  Serious: Yes (Death)
  Sender: FDA-Public Use
  Company Number: US-SUNOVION-2017SUN001690

PATIENT
  Age: 79 Year
  Sex: Male
  Weight: 52 kg

DRUGS (1)
  1. INDACATEROL AND GLYCOPYRROLATE [Suspect]
     Active Substance: GLYCOPYRROLATE\INDACATEROL MALEATE
     Indication: RESPIRATORY FAILURE
     Dosage: 1 DF (110/50 MG), QD
     Route: 055

REACTIONS (3)
  - Hypertension [Fatal]
  - Chronic kidney disease [Fatal]
  - Product use issue [Unknown]

NARRATIVE: CASE EVENT DATE: 20170327
